FAERS Safety Report 8018851-3 (Version None)
Quarter: 2012Q1

REPORT INFORMATION
  Report Type: 
  Country: None (occurrence: None)
  Receive Date: 20120103
  Receipt Date: 20111227
  Transmission Date: 20120608
  Serious: No
  Sender: FDA-Public Use
  Company Number: US-B.I. PHARMACEUTICALS,INC./RIDGEFIELD-2011-BP-28858BP

PATIENT
  Sex: Male

DRUGS (4)
  1. SPIRIVA [Suspect]
     Indication: CHRONIC OBSTRUCTIVE PULMONARY DISEASE
     Dosage: 18 MCG
     Route: 055
     Dates: start: 20060101
  2. GLIPIZIDE [Concomitant]
     Indication: DIABETES MELLITUS
  3. SPIRIVA [Suspect]
     Indication: EMPHYSEMA
  4. COREG [Concomitant]
     Indication: CARDIAC DISORDER

REACTIONS (1)
  - DYSPNOEA [None]
